FAERS Safety Report 6076303-4 (Version None)
Quarter: 2009Q1

REPORT INFORMATION
  Report Type: 
  Country: None (occurrence: None)
  Receive Date: 20090209
  Receipt Date: 20090128
  Transmission Date: 20090719
  Serious: Yes (Other)
  Sender: FDA-Public Use
  Company Number: 2009AP000381

PATIENT
  Sex: Male

DRUGS (1)
  1. GABAPENTIN [Suspect]
     Indication: DIABETIC NEUROPATHY
     Dosage: 300 MG;HS;PO
     Route: 048
     Dates: start: 20080815, end: 20080901

REACTIONS (4)
  - BLOOD PRESSURE INCREASED [None]
  - CARDIOMEGALY [None]
  - DYSPNOEA [None]
  - VASODILATATION [None]
